FAERS Safety Report 21252943 (Version 1)
Quarter: 2022Q3

REPORT INFORMATION
  Report Type: Spontaneous
  Country: JP (occurrence: JP)
  Receive Date: 20220825
  Receipt Date: 20220825
  Transmission Date: 20221026
  Serious: Yes (Other)
  Sender: FDA-Public Use
  Company Number: JP-MLMSERVICE-20220810-3726257-1

PATIENT
  Age: 56 Year
  Sex: Female

DRUGS (4)
  1. CISPLATIN [Suspect]
     Active Substance: CISPLATIN
     Indication: Osteosarcoma
     Dosage: 100 MG/M2 AT 21-DAY INTERVALS
     Dates: start: 2018
  2. DOXORUBICIN [Suspect]
     Active Substance: DOXORUBICIN
     Indication: Osteosarcoma
     Dosage: 20 MG/M2/DAY FOR 3 DAYS
     Dates: start: 2018
  3. CISPLATIN [Suspect]
     Active Substance: CISPLATIN
     Indication: Metaplastic breast carcinoma
     Dosage: 100 MG/M2 AT 21-DAY INTERVALS
     Dates: start: 2018
  4. DOXORUBICIN [Suspect]
     Active Substance: DOXORUBICIN
     Indication: Breast cancer metastatic
     Dosage: 20 MG/M2/DAY FOR 3 DAYS
     Dates: start: 2018

REACTIONS (2)
  - Atrioventricular block complete [Unknown]
  - Renal impairment [Unknown]
